FAERS Safety Report 11548421 (Version 1)
Quarter: 2015Q3

REPORT INFORMATION
  Report Type: Spontaneous
  Country: US (occurrence: US)
  Receive Date: 20150924
  Receipt Date: 20150924
  Transmission Date: 20151125
  Serious: No
  Sender: FDA-Public Use
  Company Number: US-INCYTE CORPORATION-2015IN000855

PATIENT
  Sex: Male
  Weight: 116 kg

DRUGS (8)
  1. JAKAFI [Suspect]
     Active Substance: RUXOLITINIB
     Indication: MYELOFIBROSIS
     Dosage: 5 MG, BID
     Route: 048
     Dates: start: 201502
  2. LASIX [Concomitant]
     Active Substance: FUROSEMIDE
  3. VITAMIN D                          /00107901/ [Concomitant]
     Active Substance: ERGOCALCIFEROL
  4. LEVEMIR [Concomitant]
     Active Substance: INSULIN DETEMIR
  5. OXYCODONE [Concomitant]
     Active Substance: OXYCODONE
  6. NOVOLOG [Concomitant]
     Active Substance: INSULIN ASPART
  7. MORPHINE [Concomitant]
     Active Substance: MORPHINE
  8. INSULIN [Concomitant]
     Active Substance: INSULIN NOS
     Dosage: UNK

REACTIONS (11)
  - Dyspnoea exertional [Recovered/Resolved]
  - Oedema peripheral [Recovered/Resolved]
  - Fatigue [Recovered/Resolved]
  - Disorientation [Recovered/Resolved]
  - Night sweats [Recovered/Resolved]
  - Bone pain [Recovered/Resolved]
  - Anaemia [Recovered/Resolved]
  - Haematocrit decreased [Unknown]
  - Blood glucose decreased [Recovered/Resolved]
  - Confusional state [Recovered/Resolved]
  - Hyperhidrosis [Recovered/Resolved]
